FAERS Safety Report 11823529 (Version 2)
Quarter: 2016Q1

REPORT INFORMATION
  Report Type: Report from Study
  Country: JP (occurrence: JP)
  Receive Date: 20151210
  Receipt Date: 20160104
  Transmission Date: 20160525
  Serious: Yes (Hospitalization)
  Sender: FDA-Public Use
  Company Number: JP-UCBSA-2015039579

PATIENT
  Age: 18 Year
  Sex: Female
  Weight: 42 kg

DRUGS (21)
  1. PROPETO [Concomitant]
     Indication: DECUBITUS ULCER
     Dosage: UNK, AS NEEDED (PRN)
     Route: 048
     Dates: start: 20150119
  2. CAFFEINE AND SODIUM BENZOATE [Concomitant]
     Active Substance: CAFFEINE\SODIUM BENZOATE
     Indication: PROPHYLAXIS
     Dosage: 0.1 G, 2X/DAY (BID)
     Route: 048
     Dates: start: 20120418
  3. EURAX [Concomitant]
     Active Substance: CROTAMITON
     Indication: RASH
     Dosage: UNK, AS NEEDED (PRN)
     Route: 048
     Dates: start: 20150521
  4. LACOSAMIDE EP [Suspect]
     Active Substance: LACOSAMIDE
     Indication: EPILEPSY
     Dosage: 150 MG, 2X/DAY (BID)
     Route: 048
     Dates: start: 20140527
  5. ACUATIM [Concomitant]
     Active Substance: NADIFLOXACIN
     Indication: RASH
     Dosage: UNK, 2X/DAY (BID)
     Route: 048
     Dates: start: 20150401
  6. TEGRETOL [Concomitant]
     Active Substance: CARBAMAZEPINE
     Indication: PARTIAL SEIZURES
     Dosage: 400 MG, 2X/DAY (BID)
     Route: 048
     Dates: start: 20151019
  7. MONTELUKAST [Concomitant]
     Active Substance: MONTELUKAST SODIUM
     Indication: RHINITIS ALLERGIC
     Dosage: 10 MG, ONCE DAILY (QD)
     Route: 048
     Dates: start: 20150618
  8. DALACIN T [Concomitant]
     Active Substance: CLINDAMYCIN PHOSPHATE
     Indication: RASH
     Dosage: UNK, AS NEEDED (PRN)
     Route: 048
     Dates: start: 20150521
  9. LACTOMIN [Concomitant]
     Active Substance: LACTOBACILLUS ACIDOPHILUS
     Indication: CONSTIPATION
     Dosage: 6 G, 2X/DAY (BID)
     Route: 048
     Dates: start: 20150427
  10. GLYCERIN. [Concomitant]
     Active Substance: GLYCERIN
     Indication: CONSTIPATION
     Dosage: UNK, AS NEEDED (PRN); ROUTE: PR
  11. KEPPRA [Concomitant]
     Active Substance: LEVETIRACETAM
     Indication: PARTIAL SEIZURES
     Dosage: 1100 MG, 2X/DAY (BID); STRENGTH: 50%
     Route: 048
     Dates: start: 20131224
  12. ESCRE [Concomitant]
     Indication: INSOMNIA
     Dosage: UNK, AS NEEDED (PRN): ROUTE: PR
     Dates: start: 20140820
  13. BIOFERMIN R [Concomitant]
     Active Substance: BACILLUS SUBTILIS\LACTOBACILLUS ACIDOPHILUS\STREPTOCOCCUS FAECAIS
     Indication: CONSTIPATION
     Dosage: 1.5 G, 3X/DAY (TID)
     Route: 048
     Dates: start: 2010
  14. BARAMYCIN [Concomitant]
     Indication: DECUBITUS ULCER
     Dosage: UNK, 2X/DAY (BID)
     Route: 048
     Dates: start: 20150123
  15. FERRIC PYROPHOSPHATE [Concomitant]
     Active Substance: FERRIC PYROPHOSPHATE
     Indication: ANAEMIA
     Dosage: 4 ML, 3X/DAY (TID)
     Route: 048
     Dates: start: 20150129
  16. ALFAROL [Concomitant]
     Active Substance: ALFACALCIDOL
     Indication: OSTEOPOROSIS
     Dosage: 2 ML, ONCE DAILY (QD)
     Route: 048
  17. CROTAMITON [Concomitant]
     Active Substance: CROTAMITON
     Indication: DECUBITUS ULCER
     Dosage: UNK, AS NEEDED (PRN)
     Route: 048
     Dates: start: 20150123
  18. DEXAMETHASONE. [Concomitant]
     Active Substance: DEXAMETHASONE
     Indication: RASH
     Dosage: UNK, 2X/DAY (BID)
     Route: 048
     Dates: start: 20150401
  19. ANHIBA [Concomitant]
     Active Substance: ACETAMINOPHEN
     Indication: ANTIPYRESIS
     Dosage: UNK, AS NEEDED (PRN): ROUTE: PR
     Dates: start: 20151202
  20. MYSTAN [Concomitant]
     Active Substance: CLOBAZAM
     Indication: PARTIAL SEIZURES
     Dosage: 10 MG, 2X/DAY (BID)
     Route: 048
     Dates: start: 20111031
  21. NASONEX [Concomitant]
     Active Substance: MOMETASONE FUROATE
     Indication: RHINITIS ALLERGIC
     Dosage: UNK, ONCE DAILY (QD)
     Dates: start: 20150618

REACTIONS (1)
  - Pneumonia [Recovered/Resolved]

NARRATIVE: CASE EVENT DATE: 20151202
